FAERS Safety Report 16464800 (Version 1)
Quarter: 2019Q2

REPORT INFORMATION
  Report Type: Spontaneous
  Country: US (occurrence: US)
  Receive Date: 20190621
  Receipt Date: 20190621
  Transmission Date: 20190711
  Serious: No
  Sender: FDA-Public Use
  Company Number: US-ASTRAZENECA-2019SE78726

PATIENT
  Age: 74 Year
  Sex: Female

DRUGS (4)
  1. CRESTOR [Suspect]
     Active Substance: ROSUVASTATIN CALCIUM
     Indication: BLOOD CHOLESTEROL INCREASED
     Route: 048
  2. LIPITOR [Concomitant]
     Active Substance: ATORVASTATIN CALCIUM
  3. ZOCOR [Concomitant]
     Active Substance: SIMVASTATIN
  4. COQ 10 [Concomitant]
     Active Substance: UBIDECARENONE

REACTIONS (2)
  - Dyskinesia [Unknown]
  - Muscle spasms [Not Recovered/Not Resolved]
